FAERS Safety Report 7610897-X (Version None)
Quarter: 2011Q3

REPORT INFORMATION
  Report Type: 
  Country: None (occurrence: None)
  Receive Date: 20110715
  Receipt Date: 20110712
  Transmission Date: 20111222
  Serious: Yes (Hospitalization)
  Sender: FDA-Public Use
  Company Number: US-BRISTOL-MYERS SQUIBB COMPANY-15895972

PATIENT
  Age: 11 Year
  Sex: Male
  Weight: 33 kg

DRUGS (5)
  1. FILGRASTIM [Concomitant]
  2. SPRYCEL [Suspect]
     Indication: ACUTE LYMPHOCYTIC LEUKAEMIA
     Dosage: LAST DOSE:28JUN11 COURSES:2
     Route: 048
     Dates: start: 20110526
  3. ETOPOSIDE [Suspect]
     Indication: ACUTE LYMPHOCYTIC LEUKAEMIA
     Dosage: COURSES:2
     Route: 042
     Dates: start: 20110526
  4. MESNA [Concomitant]
  5. IFOSFAMIDE [Suspect]
     Indication: ACUTE LYMPHOCYTIC LEUKAEMIA
     Dosage: COURSES:2
     Route: 042
     Dates: start: 20110526

REACTIONS (3)
  - NAUSEA [None]
  - DEHYDRATION [None]
  - DECREASED APPETITE [None]
